FAERS Safety Report 6422936-2 (Version None)
Quarter: 2009Q4

REPORT INFORMATION
  Report Type: 
  Country: None (occurrence: None)
  Receive Date: 20091102
  Receipt Date: 20091029
  Transmission Date: 20100525
  Serious: Yes (Death, Hospitalization, Other)
  Sender: FDA-Public Use
  Company Number: JP-ELI_LILLY_AND_COMPANY-JP200910004933

PATIENT
  Sex: Male
  Weight: 59 kg

DRUGS (3)
  1. ALIMTA [Suspect]
     Indication: LUNG ADENOCARCINOMA RECURRENT
     Dosage: 800 MG, OTHER
     Route: 042
     Dates: start: 20090831, end: 20090925
  2. PANVITAN [Concomitant]
     Dosage: 1 G, DAILY (1/D)
     Route: 048
     Dates: start: 20090824, end: 20091013
  3. CYANOCOBALAMIN [Concomitant]
     Dosage: 1 MG, UNK
     Route: 030
     Dates: start: 20090824, end: 20090824

REACTIONS (7)
  - HAEMOGLOBIN DECREASED [None]
  - METASTASES TO BONE [None]
  - PLATELET COUNT DECREASED [None]
  - PNEUMONIA [None]
  - RASH [None]
  - RED BLOOD CELL COUNT DECREASED [None]
  - WHITE BLOOD CELL COUNT DECREASED [None]
